FAERS Safety Report 9531231 (Version 1)
Quarter: 2013Q2

REPORT INFORMATION
  Report Type: Spontaneous
  Country: US (occurrence: None)
  Receive Date: 20130418
  Receipt Date: 20130418
  Transmission Date: 20140414
  Serious: Yes (Hospitalization)
  Sender: FDA-Public Use
  Company Number: 1031USA003693

PATIENT
  Age: 26 Year
  Sex: Female

DRUGS (3)
  1. MONTELUKAST SODIUM [Suspect]
  2. DESLORATADINE (DESLORATADINE) [Suspect]
  3. PULMICORT (BUDESONIDE) [Suspect]

REACTIONS (2)
  - Thrombocytopenia [None]
  - Contusion [None]
